FAERS Safety Report 10559422 (Version 1)
Quarter: 2014Q4

REPORT INFORMATION
  Report Type: Spontaneous
  Country: TR (occurrence: TR)
  Receive Date: 20141103
  Receipt Date: 20141103
  Transmission Date: 20150529
  Serious: Yes (Other)
  Sender: FDA-Public Use
  Company Number: TR-MYLANLABS-2014M1008999

PATIENT

DRUGS (1)
  1. ANASTROZOLE. [Suspect]
     Active Substance: ANASTROZOLE
     Route: 065
     Dates: start: 2006

REACTIONS (2)
  - Polyneuropathy [Recovered/Resolved]
  - Sjogren^s syndrome [Recovering/Resolving]
